FAERS Safety Report 6131353-4 (Version None)
Quarter: 2009Q1

REPORT INFORMATION
  Report Type: 
  Country: None (occurrence: None)
  Receive Date: 20090325
  Receipt Date: 20080902
  Transmission Date: 20090719
  Serious: No
  Sender: FDA-Public Use
  Company Number: US-BRISTOL-MYERS SQUIBB COMPANY-14133805

PATIENT
  Age: 56 Year
  Sex: Male

DRUGS (3)
  1. ERBITUX [Suspect]
     Indication: OESOPHAGEAL CARCINOMA
     Route: 042
     Dates: start: 20071126
  2. FLUOROURACIL [Suspect]
     Indication: OESOPHAGEAL CARCINOMA
     Dosage: 1 DOSAGE FORM = 400MG/M2 - 2400 MG/M2
     Route: 040
     Dates: start: 20071126
  3. DILANTIN [Concomitant]

REACTIONS (5)
  - ERYTHEMA [None]
  - NAIL BED INFLAMMATION [None]
  - OEDEMA PERIPHERAL [None]
  - PARONYCHIA [None]
  - SKIN EXFOLIATION [None]
